FAERS Safety Report 4381658-2 (Version None)
Quarter: 2004Q2

REPORT INFORMATION
  Report Type: 
  Country: None (occurrence: None)
  Receive Date: 20040603
  Receipt Date: 20030905
  Transmission Date: 20050107
  Serious: Yes (Hospitalization)
  Sender: FDA-Public Use
  Company Number: 200317988US

PATIENT
  Age: 61 Year
  Sex: Female

DRUGS (3)
  1. LOVENOX [Suspect]
     Indication: ATRIAL FIBRILLATION
     Dates: start: 20030801
  2. WARFARIN SODIUM [Concomitant]
  3. OTHER MEDICATIONS [Concomitant]

REACTIONS (2)
  - ABDOMINAL PAIN [None]
  - INJECTION SITE NODULE [None]
